FAERS Safety Report 9514725 (Version 1)
Quarter: 2013Q1

REPORT INFORMATION
  Report Type: Spontaneous
  Country: US (occurrence: None)
  Receive Date: 20130305
  Receipt Date: 20130305
  Transmission Date: 20140127
  Serious: Yes (Hospitalization)
  Sender: FDA-Public Use
  Company Number: 163-21880-12112085

PATIENT
  Age: 78 Year
  Sex: Female
  Weight: 108.86 kg

DRUGS (20)
  1. REVLIMID [Suspect]
     Indication: PLASMA CELL MYELOMA
     Dosage: 10 MG, 14 IN 21 D , PO
     Route: 048
     Dates: start: 200906
  2. ARIMIDEX (ANASTROZOLE) (TABLET) [Concomitant]
  3. ACYCLOVIR (ACICLOVIR) (TABLETS) [Concomitant]
  4. COUMADIN (WARFARIN SODIUM) [Concomitant]
  5. DEXAMETHASONE (DEXAMETHASONE) (TABLETS) [Concomitant]
  6. DIFLUCAN (FLUCONAZOLE) (TABLETS) [Concomitant]
  7. FLUVIRIN (INFLUENZA VIRUS VACCINE POLYVALENT) INJECTION [Concomitant]
  8. FOSAMAX (ALENDRONATE SODIUM) (TABLETS) [Concomitant]
  9. K-DUR (POTASSIUM CHLORIDE) (TABLETS) [Concomitant]
  10. LOVENOX (HEPARIN-FRACTION, SODIUM SALT) (SOLUTION) [Concomitant]
  11. MIRAPEX (PRAMIPEXOLE DIHYDROCHLORIDE) (TABLETS) [Concomitant]
  12. MUCINEX (GUAIFENESIN) (TABLETS) [Concomitant]
  13. OMEPRAZOLE (OMEPRAZOLE) (CAPSULES) [Concomitant]
  14. OXYCODONE -ACETAMINOPHEN (OXYCOCET) (TABLETS) [Concomitant]
  15. PHENERGAN WITH CODEINE (PHENERGAN WITH CODEINE) (LIQUID) [Concomitant]
  16. VITAMIN D (ERGOCALCIFEROL) (TABLETS) [Concomitant]
  17. ZITHROMAX (AZITHROMYCIN) (TABLETS) [Concomitant]
  18. ANASTROZOLE (ANASTROZOLE) (1 MILLIGRAM, TABLETS) [Concomitant]
  19. COZAAR (LOSARTAN POTASSIUM) (50 MILLIGRAM, TABLETS) (LOSARTAN POTASSIUM) [Concomitant]
  20. GLUCOSAMIDE CHONDROITIN ADV (GLUCOSAMINE W/ CHONDROITIN SULFATE) (TABLETS) [Concomitant]

REACTIONS (3)
  - Pneumonia [None]
  - Sepsis [None]
  - Neutropenia [None]
